FAERS Safety Report 20514025 (Version 1)
Quarter: 2022Q1

REPORT INFORMATION
  Report Type: Spontaneous
  Country: US (occurrence: US)
  Receive Date: 20220224
  Receipt Date: 20220224
  Transmission Date: 20220424
  Serious: No
  Sender: FDA-Public Use
  Company Number: US-AMNEAL PHARMACEUTICALS-2021-AMRX-02200

PATIENT
  Sex: Male

DRUGS (2)
  1. RYTARY [Suspect]
     Active Substance: CARBIDOPA\LEVODOPA
     Indication: Product used for unknown indication
     Dosage: 3 CAPS AT 7AM, 2 CAPS AT 11AM, 3PM, 7PM
     Route: 048
     Dates: end: 20211011
  2. RYTARY [Suspect]
     Active Substance: CARBIDOPA\LEVODOPA
     Dosage: 2 CAPSULES AT 7AM AND 11AM, 1 CAPSULE AT 3PM, AND 2 CAPSULES AT 7PM
     Route: 048
     Dates: start: 20211011

REACTIONS (1)
  - Weight decreased [Not Recovered/Not Resolved]
